FAERS Safety Report 4310926-5 (Version None)
Quarter: 2004Q1

REPORT INFORMATION
  Report Type: 
  Country: None (occurrence: None)
  Receive Date: 20040302
  Receipt Date: 20040226
  Transmission Date: 20041129
  Serious: Yes (Other)
  Sender: FDA-Public Use
  Company Number: 200402587

PATIENT
  Age: 37 Year
  Sex: Female

DRUGS (1)
  1. EXTRA STRENGTH TYLENOL [Suspect]
     Indication: POSTOPERATIVE ANALGESIA
     Dosage: 500 MG ONCE PO
     Route: 048
     Dates: start: 20030228, end: 20030228

REACTIONS (3)
  - DEAFNESS [None]
  - FEELING ABNORMAL [None]
  - HYPOAESTHESIA [None]
